FAERS Safety Report 18729273 (Version 4)
Quarter: 2021Q2

REPORT INFORMATION
  Report Type: Spontaneous
  Country: FR (occurrence: FR)
  Receive Date: 20210112
  Receipt Date: 20210408
  Transmission Date: 20210717
  Serious: Yes (Other)
  Sender: FDA-Public Use
  Company Number: FR-GLAXOSMITHKLINE-FR2020EME233548

PATIENT
  Sex: Male

DRUGS (21)
  1. REQUIP LP [Suspect]
     Active Substance: ROPINIROLE HYDROCHLORIDE
     Dosage: 20 MG, QD, DOSE INCREASE
     Dates: start: 201804
  2. REQUIP LP [Suspect]
     Active Substance: ROPINIROLE HYDROCHLORIDE
     Dosage: 16 MG, QD
  3. REQUIP LP [Suspect]
     Active Substance: ROPINIROLE HYDROCHLORIDE
     Dosage: 2 MG, QD
  4. AZILECT [Concomitant]
     Active Substance: RASAGILINE MESYLATE
     Indication: PARKINSON^S DISEASE
     Dosage: 1 DF, QD, 1 MG IN THE MORNING
     Dates: start: 20170505
  5. AZILECT [Concomitant]
     Active Substance: RASAGILINE MESYLATE
     Dosage: 1 DF, QD, 1 MG IN THE MORNING
  6. MODOPAR [Concomitant]
     Active Substance: BENSERAZIDE HYDROCHLORIDE\LEVODOPA
     Indication: PARKINSON^S DISEASE
     Dosage: 1 DF, QD
  7. REQUIP LP [Suspect]
     Active Substance: ROPINIROLE HYDROCHLORIDE
     Dosage: 8 MG, QD TAKE OVER THE SIFROL
  8. REQUIP LP [Suspect]
     Active Substance: ROPINIROLE HYDROCHLORIDE
     Dosage: 6 MG, QD, 3 TABLET IN THE MORNING
  9. REQUIP LP [Suspect]
     Active Substance: ROPINIROLE HYDROCHLORIDE
     Dosage: 4 MG, QD, 2 TABLET IN THE MORNING
  10. REQUIP LP [Suspect]
     Active Substance: ROPINIROLE HYDROCHLORIDE
     Dosage: 4 MG, QD, 2 TABLET IN THE MORNING
  11. REQUIP LP [Suspect]
     Active Substance: ROPINIROLE HYDROCHLORIDE
     Dosage: 2 MG, QD, 1 TABLET IN THE MORNING
  12. SIFROL [Concomitant]
     Active Substance: PRAMIPEXOLE
     Indication: PARKINSON^S DISEASE
     Dosage: 1 DF, QD, 0.26 MG
     Dates: start: 2017
  13. MODOPAR [Concomitant]
     Active Substance: BENSERAZIDE HYDROCHLORIDE\LEVODOPA
     Dosage: 1 DF, TID
  14. SIFROL [Concomitant]
     Active Substance: PRAMIPEXOLE
     Dosage: 2 DF, QD, 0.26 MG
  15. SIFROL [Concomitant]
     Active Substance: PRAMIPEXOLE
     Dosage: 3 DF, QD, 0.26 MG
     Dates: start: 2017
  16. MODOPAR [Concomitant]
     Active Substance: BENSERAZIDE HYDROCHLORIDE\LEVODOPA
     Dosage: UNK
  17. REQUIP LP [Suspect]
     Active Substance: ROPINIROLE HYDROCHLORIDE
     Indication: PARKINSON^S DISEASE
     Dosage: UNK, 250
     Route: 048
     Dates: start: 20180130
  18. REQUIP LP [Suspect]
     Active Substance: ROPINIROLE HYDROCHLORIDE
     Dosage: 4 MG, QD, 2 TABLET IN THE MORNING
  19. REQUIP LP [Suspect]
     Active Substance: ROPINIROLE HYDROCHLORIDE
     Dosage: 2 MG, QD, THEN FULL SHUTDOWN
     Dates: end: 202010
  20. SIFROL [Concomitant]
     Active Substance: PRAMIPEXOLE
     Dosage: 4 DF, QD, 0.26 MG, PLQ/30
  21. MODOPAR [Concomitant]
     Active Substance: BENSERAZIDE HYDROCHLORIDE\LEVODOPA
     Dosage: 1 DF, BID

REACTIONS (21)
  - Obsessive-compulsive disorder [Unknown]
  - Anxiety [Unknown]
  - Anger [Unknown]
  - Weight decreased [Unknown]
  - Somnolence [Unknown]
  - Tremor [Unknown]
  - Illness [Unknown]
  - Self esteem decreased [Unknown]
  - Constipation [Unknown]
  - Confusional state [Unknown]
  - Gambling [Unknown]
  - Loss of personal independence in daily activities [Unknown]
  - Memory impairment [Unknown]
  - Delusion [Unknown]
  - Emotional distress [Unknown]
  - Alcohol abuse [Unknown]
  - Compulsive sexual behaviour [Unknown]
  - Abnormal behaviour [Unknown]
  - Decreased appetite [Unknown]
  - Dependence [Not Recovered/Not Resolved]
  - Disease susceptibility [Unknown]

NARRATIVE: CASE EVENT DATE: 2018
